FAERS Safety Report 21565916 (Version 1)
Quarter: 2022Q4

REPORT INFORMATION
  Report Type: Spontaneous
  Country: US (occurrence: US)
  Receive Date: 20221108
  Receipt Date: 20221108
  Transmission Date: 20230112
  Serious: No
  Sender: FDA-Public Use
  Company Number: US-Calliditas-2022CAL00460

PATIENT
  Age: 27 Year
  Sex: Male

DRUGS (1)
  1. TARPEYO [Suspect]
     Active Substance: BUDESONIDE
     Indication: Haematuria
     Dosage: 16 MG (4 MG CAPSULES) ONCE DAILY.
     Route: 048
     Dates: start: 20220630

REACTIONS (3)
  - Hypertension [Unknown]
  - Chest pain [Unknown]
  - Frustration tolerance decreased [Unknown]
